FAERS Safety Report 21790065 (Version 3)
Quarter: 2023Q1

REPORT INFORMATION
  Report Type: Report from Study
  Country: CA (occurrence: CA)
  Receive Date: 20221228
  Receipt Date: 20230106
  Transmission Date: 20230418
  Serious: Yes (Hospitalization, Other)
  Sender: FDA-Public Use
  Company Number: CA-HLS-202202325

PATIENT
  Age: 61 Year
  Sex: Female

DRUGS (10)
  1. CLOZARIL [Suspect]
     Active Substance: CLOZAPINE
     Indication: Product used for unknown indication
     Dosage: 25 MG IN THE MORNING AND  25 MG AT DINNER AND 375 MG AT BEDTIME
     Route: 048
     Dates: start: 20110721
  2. LORAZEPAM [Concomitant]
     Active Substance: LORAZEPAM
     Indication: Product used for unknown indication
     Route: 065
     Dates: start: 202205, end: 202208
  3. CLONAZEPAM [Concomitant]
     Active Substance: CLONAZEPAM
     Indication: Product used for unknown indication
     Dosage: CLONAZEPAM 2 MG REDUCED TO 1.5 CO SINCE OCT 2022 INSTEAD OF 2 CO 8 P.M. - IN PODS
     Route: 065
  4. CLONAZEPAM [Concomitant]
     Active Substance: CLONAZEPAM
     Indication: Product used for unknown indication
     Dosage: REDUCED TO 3 MG AT BEDTIME  INSTEAD OF 4 MG AT BEDTIME IN OCTOBER 2022
     Route: 065
  5. SEROQUEL XR [Concomitant]
     Active Substance: QUETIAPINE FUMARATE
     Indication: Product used for unknown indication
     Dosage: 350MG XR AT 6 P.M. IN A POD (1 CO OF 200 MG AND 3 CO OF 50 MG)
     Route: 065
  6. SEROQUEL XR [Concomitant]
     Active Substance: QUETIAPINE FUMARATE
     Indication: Product used for unknown indication
     Dosage: 50 MG XR IN VIAL OF 21 TABLETS PER WEEK ON REQUEST, TO TAKE 2-4 HALVES A DAY INSTEAD OF 8-16 AS BEFO
     Route: 065
  7. DULOXETINE [Concomitant]
     Active Substance: DULOXETINE
     Indication: Product used for unknown indication
     Dosage: 60 MG 2 CAPS
     Route: 065
  8. ABILIFY [Concomitant]
     Active Substance: ARIPIPRAZOLE
     Indication: Product used for unknown indication
     Dosage: 2MG AM EN DOSETTE
     Route: 065
  9. AMITRIPTYLINE [Concomitant]
     Active Substance: AMITRIPTYLINE
     Indication: Product used for unknown indication
     Dosage: AMITRYPTILINE TO STOP (NO LONGER TAKING IT SINCE HGH OCT 2022).
     Route: 065
  10. TRAZODONE [Concomitant]
     Active Substance: TRAZODONE HYDROCHLORIDE
     Indication: Product used for unknown indication
     Dosage: 100 MG LOWERED INSTEAD OF 150 MG 20H IN POD, LOWERED SINCE OCT 2022.
     Route: 065

REACTIONS (18)
  - Diarrhoea [Unknown]
  - Vomiting [Unknown]
  - Anxiety [Recovering/Resolving]
  - Pneumonia aspiration [Recovering/Resolving]
  - Barrett^s oesophagus [Unknown]
  - Bipolar II disorder [Unknown]
  - Colitis [Recovering/Resolving]
  - Headache [Recovering/Resolving]
  - Iron deficiency anaemia [Unknown]
  - Constipation [Unknown]
  - Chronic obstructive pulmonary disease [Unknown]
  - Dry skin [Unknown]
  - Hallucination, auditory [Recovering/Resolving]
  - Hypothyroidism [Unknown]
  - Incontinence [Unknown]
  - Gastrointestinal obstruction [Unknown]
  - Cognitive disorder [Unknown]
  - Pneumonia [Unknown]

NARRATIVE: CASE EVENT DATE: 20200101
